FAERS Safety Report 11642980 (Version 1)
Quarter: 2015Q4

REPORT INFORMATION
  Report Type: Report from Study
  Country: US (occurrence: US)
  Receive Date: 20151020
  Receipt Date: 20151020
  Transmission Date: 20160304
  Serious: Yes (Hospitalization)
  Sender: FDA-Public Use
  Company Number: US-ROCHE-1646777

PATIENT
  Age: 54 Year
  Sex: Male
  Weight: 120 kg

DRUGS (24)
  1. BASILIXIMAB [Suspect]
     Active Substance: BASILIXIMAB
     Indication: RENAL TRANSPLANT
     Dosage: RECEIVED TWO DOSES
     Route: 042
     Dates: start: 20131024, end: 20131028
  2. CELLCEPT [Concomitant]
     Active Substance: MYCOPHENOLATE MOFETIL\MYCOPHENOLATE MOFETIL HYDROCHLORIDE
     Route: 065
  3. MYCOPHENOLATE MOFETIL. [Suspect]
     Active Substance: MYCOPHENOLATE MOFETIL
     Indication: RENAL TRANSPLANT
     Route: 048
     Dates: start: 20150430
  4. ZOFRAN [Concomitant]
     Active Substance: ONDANSETRON HYDROCHLORIDE
     Route: 065
     Dates: start: 20150717, end: 20150718
  5. PEPCID [Concomitant]
     Active Substance: FAMOTIDINE
     Route: 048
     Dates: start: 20150717, end: 20150718
  6. TACROLIMUS. [Suspect]
     Active Substance: TACROLIMUS
     Indication: RENAL TRANSPLANT
     Route: 048
     Dates: start: 20140507
  7. LOPRESSOR [Concomitant]
     Active Substance: METOPROLOL TARTRATE
     Route: 048
     Dates: start: 20150717, end: 20150718
  8. ASPIRIN. [Concomitant]
     Active Substance: ASPIRIN
     Route: 048
     Dates: start: 20150717, end: 20150718
  9. CETRIZINE [Concomitant]
     Active Substance: CETIRIZINE HYDROCHLORIDE
  10. PROGRAF [Concomitant]
     Active Substance: TACROLIMUS\TACROLIMUS ANHYDROUS
     Route: 048
  11. ATORVASTATIN [Concomitant]
     Active Substance: ATORVASTATIN
     Route: 048
  12. NARCAN [Concomitant]
     Active Substance: NALOXONE HYDROCHLORIDE
     Route: 065
     Dates: start: 20150717, end: 20150718
  13. FLUNISOLIDE. [Concomitant]
     Active Substance: FLUNISOLIDE
  14. NASAREL (FLUNISOLIDE) [Concomitant]
     Route: 065
  15. PROGRAF [Concomitant]
     Active Substance: TACROLIMUS\TACROLIMUS ANHYDROUS
     Route: 048
     Dates: start: 20150717, end: 20150718
  16. ZANTAC [Concomitant]
     Active Substance: RANITIDINE HYDROCHLORIDE
     Route: 048
  17. SODIUM CHLORIDE. [Concomitant]
     Active Substance: SODIUM CHLORIDE
     Route: 042
     Dates: start: 20150717, end: 20150718
  18. ZOCOR [Concomitant]
     Active Substance: SIMVASTATIN
     Route: 048
     Dates: start: 20150717, end: 20150718
  19. ZOCOR [Concomitant]
     Active Substance: SIMVASTATIN
     Route: 048
     Dates: start: 20150718, end: 20150718
  20. CHOLECALCIFEROL [Concomitant]
     Active Substance: CHOLECALCIFEROL
  21. CALCIUM CARBONATE. [Concomitant]
     Active Substance: CALCIUM CARBONATE
  22. LEVITRA [Concomitant]
     Active Substance: VARDENAFIL HYDROCHLORIDE TRIHYDRATE
     Route: 048
  23. DILTIAZEM HYDROCHLORIDE. [Concomitant]
     Active Substance: DILTIAZEM HYDROCHLORIDE
     Route: 048
     Dates: start: 20150717, end: 20150718
  24. DELTASONE (PREDNISONE) [Concomitant]
     Route: 048
     Dates: start: 20150717, end: 20150718

REACTIONS (3)
  - Abdominal pain [Recovered/Resolved]
  - Leukocytosis [Recovering/Resolving]
  - Pyrexia [Recovered/Resolved]

NARRATIVE: CASE EVENT DATE: 20150717
